FAERS Safety Report 10070415 (Version 3)
Quarter: 2014Q2

REPORT INFORMATION
  Report Type: Spontaneous
  Country: PT (occurrence: PT)
  Receive Date: 20140410
  Receipt Date: 20140618
  Transmission Date: 20141212
  Serious: Yes (Hospitalization)
  Sender: FDA-Public Use
  Company Number: PT-PFIZER INC-2014098812

PATIENT
  Age: 70 Year
  Sex: Male
  Weight: 66 kg

DRUGS (16)
  1. ALDACTONE [Suspect]
     Indication: HYPERTENSION
     Dosage: 25 MG, 1X/DAY
     Route: 048
     Dates: start: 20130329, end: 20140121
  2. AMIODARONE [Suspect]
     Indication: HYPERTENSION
     Dosage: 100 MG, 1X/DAY (1/2 DF)
     Route: 048
     Dates: start: 20131220, end: 20140121
  3. PLASTRANIT [Concomitant]
     Dosage: 5 MG/24H, 1X/DAY
     Route: 062
     Dates: start: 20111031
  4. LOPRESSOR [Concomitant]
     Dosage: 100 MG, 2X/DAY
     Route: 048
     Dates: start: 20120301
  5. COVERAM [Concomitant]
     Dosage: 1 DF (10MG+10MG), 1X/DAY
     Route: 048
     Dates: start: 201105
  6. HYPERIUM [Concomitant]
     Dosage: 1 MG, 1X/DAY
     Route: 048
     Dates: start: 20130301
  7. HYGROTON [Concomitant]
     Dosage: 50 MG, 1X/DAY
     Route: 048
     Dates: start: 20120225
  8. ASPIRINA GR [Concomitant]
     Dosage: 100 MG, 1X/DAY
     Route: 048
     Dates: start: 2012
  9. ACARBOSE [Concomitant]
     Dosage: 100 MG, 2X/DAY
     Route: 048
     Dates: start: 20131108
  10. GLICLAZIDE [Concomitant]
     Dosage: 30 MG, 1X/DAY
     Route: 048
     Dates: start: 20131101
  11. SIMVASTATIN STADA [Concomitant]
     Dosage: 40 MG, 1X/DAY
     Route: 048
     Dates: start: 20111031
  12. CLOXAZOLAM [Concomitant]
     Dosage: 2 MG, 1X/DAY
     Route: 048
     Dates: start: 2006
  13. BROMALEX [Concomitant]
     Dosage: 1.5 MG, 1X/DAY
     Route: 048
     Dates: start: 2006
  14. OMEPRAZOL [Concomitant]
     Dosage: 20 MG, 1X/DAY
     Route: 048
     Dates: start: 201102
  15. PENTOXIFYLLINE [Concomitant]
     Dosage: 400 MG, 3X/DAY
     Route: 048
  16. JANUVIA [Concomitant]
     Dosage: 100 MG, 1X/DAY
     Route: 048
     Dates: start: 20131101

REACTIONS (5)
  - Hyperkalaemia [Recovered/Resolved]
  - Bradycardia [Recovered/Resolved]
  - Dizziness [Unknown]
  - Malaise [Unknown]
  - Vomiting [Unknown]
